FAERS Safety Report 5301752-9 (Version None)
Quarter: 2007Q2

REPORT INFORMATION
  Report Type: 
  Country: None (occurrence: None)
  Receive Date: 20070419
  Receipt Date: 20070413
  Transmission Date: 20071010
  Serious: Yes (Other)
  Sender: FDA-Public Use
  Company Number: CH-JNJFOC-20070403001

PATIENT
  Age: 39 Year
  Sex: Female

DRUGS (9)
  1. RISPERDAL [Suspect]
     Indication: DRUG USE FOR UNKNOWN INDICATION
     Route: 048
  2. COMBIVIR [Suspect]
     Indication: HIV INFECTION
     Route: 048
  3. STOCRIN [Suspect]
     Indication: HIV INFECTION
     Route: 048
  4. EFFEXOR [Concomitant]
     Route: 048
  5. TRUXAL [Concomitant]
     Route: 048
  6. SERESTA [Concomitant]
     Route: 048
  7. SELIPRAN [Concomitant]
     Route: 048
  8. BECOZYM [Concomitant]
     Route: 048
  9. METHADONE HCL [Concomitant]
     Route: 048

REACTIONS (2)
  - HEPATIC STEATOSIS [None]
  - HYPERTRIGLYCERIDAEMIA [None]
